FAERS Safety Report 5145378-9 (Version None)
Quarter: 2006Q4

REPORT INFORMATION
  Report Type: 
  Country: None (occurrence: None)
  Receive Date: 20061101
  Receipt Date: 20061012
  Transmission Date: 20070319
  Serious: Yes (Hospitalization, Other)
  Sender: FDA-Public Use
  Company Number: GB200610002224

PATIENT
  Age: 73 Year
  Sex: Female

DRUGS (7)
  1. FLUOXETINE [Suspect]
  2. VENLAFAXINE HYDROCHLORIDE [Concomitant]
  3. MIRTAZAPINE [Concomitant]
  4. CODEINE [Concomitant]
  5. LOPRAZOLAM                    (LOPRAZOLAM) [Concomitant]
  6. ACETAMINOPHEN [Concomitant]
  7. PROMAZINE HCL [Concomitant]

REACTIONS (5)
  - CONVULSION [None]
  - DISORIENTATION [None]
  - FALL [None]
  - HEARING IMPAIRED [None]
  - LOSS OF CONSCIOUSNESS [None]
